FAERS Safety Report 14474976 (Version 1)
Quarter: 2018Q1

REPORT INFORMATION
  Report Type: Spontaneous
  Country: US (occurrence: US)
  Receive Date: 20180201
  Receipt Date: 20180201
  Transmission Date: 20180509
  Serious: Yes (Other)
  Sender: FDA-Public Use
  Company Number: US-JNJFOC-20180129220

PATIENT
  Sex: Female
  Weight: 64.86 kg

DRUGS (6)
  1. XARELTO [Suspect]
     Active Substance: RIVAROXABAN
     Indication: CEREBROVASCULAR ACCIDENT PROPHYLAXIS
     Dosage: INITIATED IN OCT-2016 OR DEC-2016????DISCONTINUED IN JUN-2017 OR JUL-2017
     Route: 048
     Dates: start: 2016, end: 2017
  2. XARELTO [Suspect]
     Active Substance: RIVAROXABAN
     Indication: ATRIAL FIBRILLATION
     Route: 048
     Dates: start: 2017
  3. XARELTO [Suspect]
     Active Substance: RIVAROXABAN
     Indication: ATRIAL FIBRILLATION
     Dosage: INITIATED IN OCT-2016 OR DEC-2016????DISCONTINUED IN JUN-2017 OR JUL-2017
     Route: 048
     Dates: start: 2016, end: 2017
  4. XARELTO [Suspect]
     Active Substance: RIVAROXABAN
     Indication: CEREBROVASCULAR ACCIDENT PROPHYLAXIS
     Route: 048
     Dates: start: 2017
  5. XARELTO [Suspect]
     Active Substance: RIVAROXABAN
     Indication: THROMBOSIS
     Dosage: INITIATED IN OCT-2016 OR DEC-2016????DISCONTINUED IN JUN-2017 OR JUL-2017
     Route: 048
     Dates: start: 2016, end: 2017
  6. XARELTO [Suspect]
     Active Substance: RIVAROXABAN
     Indication: THROMBOSIS
     Route: 048
     Dates: start: 2017

REACTIONS (5)
  - Body height decreased [Unknown]
  - Multiple fractures [Unknown]
  - Thrombosis [Unknown]
  - Off label use [Unknown]
  - Inappropriate schedule of drug administration [Unknown]

NARRATIVE: CASE EVENT DATE: 2016
